FAERS Safety Report 7818146-4 (Version None)
Quarter: 2011Q4

REPORT INFORMATION
  Report Type: 
  Country: None (occurrence: None)
  Receive Date: 20111017
  Receipt Date: 20111006
  Transmission Date: 20120403
  Serious: Yes (Hospitalization, Other)
  Sender: FDA-Public Use
  Company Number: AU-ROCHE-GNE322431

PATIENT
  Sex: Male

DRUGS (3)
  1. LUCENTIS [Suspect]
     Indication: MACULAR DEGENERATION
     Dosage: 0.05 ML, UNKNOWN
     Route: 050
     Dates: start: 20090717
  2. LUCENTIS [Suspect]
     Dates: start: 20110713
  3. LUCENTIS [Suspect]
     Dates: start: 20110128

REACTIONS (5)
  - FALL [None]
  - CONJUNCTIVAL HAEMORRHAGE [None]
  - ULCERATIVE KERATITIS [None]
  - EYE IRRITATION [None]
  - MULTIPLE FRACTURES [None]
